FAERS Safety Report 4662580-0 (Version None)
Quarter: 2005Q2

REPORT INFORMATION
  Report Type: 
  Country: None (occurrence: None)
  Receive Date: 20050513
  Receipt Date: 20050513
  Transmission Date: 20051028
  Serious: Yes (Disabling)
  Sender: FDA-Public Use
  Company Number: None

PATIENT
  Age: 32 Year
  Sex: Male
  Weight: 104.3273 kg

DRUGS (1)
  1. CIPROFLOXACIN [Suspect]
     Indication: SINUSITIS
     Dates: start: 20041110, end: 20041125

REACTIONS (1)
  - NEUROPATHY PERIPHERAL [None]
